FAERS Safety Report 5943615-1 (Version None)
Quarter: 2008Q4

REPORT INFORMATION
  Report Type: 
  Country: None (occurrence: None)
  Receive Date: 20081106
  Receipt Date: 20081028
  Transmission Date: 20090506
  Serious: Yes (Other)
  Sender: FDA-Public Use
  Company Number: ZA-ASTRAZENECA-2008SE05018

PATIENT
  Age: 32 Year
  Sex: Female

DRUGS (4)
  1. SEROQUEL [Suspect]
     Indication: BIPOLAR DISORDER
     Route: 048
  2. SEROQUEL [Suspect]
     Indication: PERSONALITY DISORDER
     Route: 048
  3. VALPROATE SODIUM [Concomitant]
  4. LAMOTRIGINE [Concomitant]

REACTIONS (1)
  - BONE MARROW FAILURE [None]
